FAERS Safety Report 18291134 (Version 1)
Quarter: 2020Q3

REPORT INFORMATION
  Report Type: Spontaneous
  Country: US (occurrence: US)
  Receive Date: 20200922
  Receipt Date: 20200922
  Transmission Date: 20201103
  Serious: No
  Sender: FDA-Public Use
  Company Number: US-SA-2020SA251741

PATIENT

DRUGS (1)
  1. THYROGEN [Suspect]
     Active Substance: THYROTROPIN ALFA
     Indication: DIAGNOSTIC PROCEDURE
     Dosage: 0.9 MG, QD
     Route: 030
     Dates: start: 20200914

REACTIONS (2)
  - Off label use [Unknown]
  - Product preparation issue [Unknown]

NARRATIVE: CASE EVENT DATE: 202009
